FAERS Safety Report 7795352-9 (Version None)
Quarter: 2011Q4

REPORT INFORMATION
  Report Type: 
  Country: None (occurrence: None)
  Receive Date: 20111004
  Receipt Date: 20110921
  Transmission Date: 20120403
  Serious: Yes (Other)
  Sender: FDA-Public Use
  Company Number: US-JNJFOC-20110909052

PATIENT
  Age: 52 Year
  Sex: Female
  Weight: 97.52 kg

DRUGS (16)
  1. FISH OIL [Concomitant]
     Indication: MEDICAL DIET
     Dosage: 1X A DAY, OFF AND ON
     Route: 065
  2. ESTROGENIC SUBSTANCE [Concomitant]
     Indication: HORMONE REPLACEMENT THERAPY
     Route: 065
  3. BIOTIN [Concomitant]
     Indication: ALOPECIA
     Dosage: 1000 MCG
     Route: 065
  4. MULTI-VITAMINS [Concomitant]
     Indication: MEDICAL DIET
     Route: 065
  5. VITAMIN B-12 [Concomitant]
     Indication: MEDICAL DIET
     Route: 065
  6. CRESTOR [Concomitant]
     Indication: BLOOD CHOLESTEROL INCREASED
     Route: 065
  7. LISINOPRIL [Concomitant]
     Indication: HYPERTENSION
     Route: 065
  8. ROGAINE (FOR WOMEN) [Suspect]
     Route: 061
  9. METFORMIN HCL [Concomitant]
     Indication: DIABETES MELLITUS
     Route: 065
  10. ROGAINE EXTRA STRENGTH (FOR MEN) [Suspect]
     Indication: ALOPECIA
     Dosage: 1/2 CAPFUL OR LESS 1-2X A DAY THEN EVERY OTHER DAY.
     Route: 061
     Dates: start: 20110101
  11. ROGAINE (FOR WOMEN) [Suspect]
     Indication: ALOPECIA
     Dosage: RECOMMENDED DOSAGE, 2 TIMES PER DAY, MORNING AND NIGHT.
     Route: 061
     Dates: start: 20090101
  12. MINOXIDIL [Suspect]
     Indication: ALOPECIA
     Route: 065
     Dates: end: 20110101
  13. ROGAINE EXTRA STRENGTH (FOR MEN) [Suspect]
     Route: 061
  14. ADDERALL 5 [Concomitant]
     Indication: ATTENTION DEFICIT/HYPERACTIVITY DISORDER
     Route: 065
  15. LIPITOR [Concomitant]
     Indication: BLOOD CHOLESTEROL INCREASED
     Route: 065
  16. XANAX [Concomitant]
     Indication: ANXIETY
     Dosage: 0.5-1.5 MG
     Route: 065

REACTIONS (8)
  - AMENORRHOEA [None]
  - HAIR COLOUR CHANGES [None]
  - BREAST CANCER [None]
  - PRURITUS [None]
  - ALOPECIA [None]
  - HYPOTENSION [None]
  - OFF LABEL USE [None]
  - WRONG DRUG ADMINISTERED [None]
